FAERS Safety Report 6337323-5 (Version None)
Quarter: 2009Q3

REPORT INFORMATION
  Report Type: 
  Country: None (occurrence: None)
  Receive Date: 20090902
  Receipt Date: 20070605
  Transmission Date: 20100115
  Serious: Yes (Other)
  Sender: FDA-Public Use
  Company Number: US-ASTRAZENECA-2006UW24179

PATIENT
  Age: 17249 Day
  Sex: Male
  Weight: 117.9 kg

DRUGS (8)
  1. SEROQUEL [Suspect]
     Indication: SCHIZOPHRENIA
     Dosage: 25 MG TO 300 MG
     Route: 048
     Dates: start: 20000209
  2. SEROQUEL [Suspect]
     Indication: BIPOLAR DISORDER
     Dosage: 25 MG TO 300 MG
     Route: 048
     Dates: start: 20000209
  3. SEROQUEL [Suspect]
     Indication: DEPRESSION
     Dosage: 25 MG TO 300 MG
     Route: 048
     Dates: start: 20000209
  4. SEROQUEL [Suspect]
     Indication: INSOMNIA
     Dosage: 25 MG TO 300 MG
     Route: 048
     Dates: start: 20000209
  5. ZYPREXA [Concomitant]
     Route: 048
     Dates: start: 19980225
  6. ZOLOFT [Concomitant]
     Dosage: 50 MG TO 100 MG
     Dates: start: 20000209
  7. METFORMIN HCL [Concomitant]
     Route: 048
     Dates: start: 20001210
  8. ESKALITH CR [Concomitant]
     Route: 048
     Dates: start: 20001210

REACTIONS (3)
  - DIABETES MELLITUS [None]
  - DIABETES MELLITUS INADEQUATE CONTROL [None]
  - DIABETIC NEUROPATHY [None]
